FAERS Safety Report 16428244 (Version 2)
Quarter: 2019Q3

REPORT INFORMATION
  Report Type: Other
  Country: US (occurrence: US)
  Receive Date: 20190613
  Receipt Date: 20190708
  Transmission Date: 20191004
  Serious: Yes (Hospitalization, Other)
  Sender: FDA-Public Use
  Company Number: US-AMAG PHARMACEUTICALS, INC.-AMAG201902574

PATIENT
  Age: 0 Year
  Sex: Female
  Weight: 1.09 kg

DRUGS (1)
  1. MAKENA [Suspect]
     Active Substance: HYDROXYPROGESTERONE CAPROATE
     Indication: FOETAL EXPOSURE DURING PREGNANCY
     Route: 064
     Dates: start: 20190214, end: 20190321

REACTIONS (5)
  - Foetal distress syndrome [Unknown]
  - Neonatal respiratory failure [Unknown]
  - Foetal heart rate deceleration abnormality [Unknown]
  - Sepsis neonatal [Unknown]
  - Premature baby [Unknown]

NARRATIVE: CASE EVENT DATE: 2019
